FAERS Safety Report 10813630 (Version 4)
Quarter: 2015Q1

REPORT INFORMATION
  Report Type: Spontaneous
  Country: US (occurrence: US)
  Receive Date: 20150218
  Receipt Date: 20150319
  Transmission Date: 20150721
  Serious: Yes (Death, Other)
  Sender: FDA-Public Use
  Company Number: US-JNJFOC-20150205532

PATIENT
  Age: 55 Year
  Sex: Male
  Weight: 96 kg

DRUGS (16)
  1. XARELTO [Suspect]
     Active Substance: RIVAROXABAN
     Indication: DEEP VEIN THROMBOSIS
     Dosage: THERAPY START DATE: APPROXIMATELY 1 YEAR AGO
     Route: 048
     Dates: start: 20130508, end: 20150116
  2. OMEPRAZOLE. [Concomitant]
     Active Substance: OMEPRAZOLE
     Route: 048
     Dates: start: 20121013
  3. XARELTO [Suspect]
     Active Substance: RIVAROXABAN
     Indication: PULMONARY EMBOLISM
     Dosage: THERAPY START DATE: APPROXIMATELY 1 YEAR AGO
     Route: 048
     Dates: start: 20130508, end: 20150116
  4. VITAMIN B12 [Concomitant]
     Active Substance: CYANOCOBALAMIN
     Route: 048
     Dates: start: 20150120
  5. BUPROPION HCL [Concomitant]
     Active Substance: BUPROPION HYDROCHLORIDE
     Route: 048
     Dates: start: 20120913
  6. CITALOPRAM HYDROBROMIDE. [Concomitant]
     Active Substance: CITALOPRAM HYDROBROMIDE
     Route: 048
     Dates: start: 20121013
  7. GABAPENTINE [Concomitant]
     Active Substance: GABAPENTIN
     Dosage: 2-3 TIMES DAILY
     Route: 048
     Dates: start: 20140305
  8. XARELTO [Suspect]
     Active Substance: RIVAROXABAN
     Indication: DISSEMINATED INTRAVASCULAR COAGULATION
     Dosage: THERAPY START DATE: APPROXIMATELY 1 YEAR AGO
     Route: 048
     Dates: start: 20130508, end: 20150116
  9. QUETIAPINE FUMARATE. [Concomitant]
     Active Substance: QUETIAPINE FUMARATE
     Dosage: AT BED TIME
     Route: 048
     Dates: start: 20140305
  10. COUMADIN [Suspect]
     Active Substance: WARFARIN SODIUM
     Indication: PRODUCT USED FOR UNKNOWN INDICATION
     Route: 048
     Dates: start: 20150120
  11. ALCOHOL. [Suspect]
     Active Substance: ALCOHOL
     Indication: PRODUCT USED FOR UNKNOWN INDICATION
     Route: 065
  12. VITAMIN D3 [Concomitant]
     Active Substance: CHOLECALCIFEROL
     Route: 048
     Dates: start: 20120913
  13. ATORVASTATIN CALCIUM. [Concomitant]
     Active Substance: ATORVASTATIN CALCIUM
     Dosage: 1/2  TABLETORAL AT BED TIME
     Route: 048
     Dates: start: 20150120
  14. PRAZOSIN [Concomitant]
     Active Substance: PRAZOSIN
     Dosage: AT BED TIME
     Route: 048
     Dates: start: 20121013
  15. METHOCARBAMOL. [Concomitant]
     Active Substance: METHOCARBAMOL
     Dosage: AT BED TIME
     Route: 048
     Dates: start: 20140305
  16. BUTALBITAL/APAP/CAFFEINE [Concomitant]
     Active Substance: ACETAMINOPHEN\BUTABARBITAL\CAFFEINE
     Dosage: 325 MG-50MG-40MG??(1 EACH ORAL AS NEEDED)
     Route: 048
     Dates: start: 20120913

REACTIONS (3)
  - Nausea [Unknown]
  - Myocardial infarction [Fatal]
  - Haematemesis [Unknown]

NARRATIVE: CASE EVENT DATE: 20150106
